FAERS Safety Report 18027379 (Version 1)
Quarter: 2020Q3

REPORT INFORMATION
  Report Type: Spontaneous
  Country: FR (occurrence: FR)
  Receive Date: 20200716
  Receipt Date: 20200716
  Transmission Date: 20201103
  Serious: Yes (Hospitalization, Other)
  Sender: FDA-Public Use
  Company Number: FR-AUROBINDO-AUR-APL-2020-035076

PATIENT
  Age: 80 Year
  Sex: Male
  Weight: 83 kg

DRUGS (5)
  1. HYDROXYZINE [Suspect]
     Active Substance: HYDROXYZINE HYDROCHLORIDE
     Indication: ANXIETY
     Dosage: 25 MILLIGRAM
     Route: 048
     Dates: start: 20200615, end: 20200617
  2. PIPERACILLIN. [Suspect]
     Active Substance: PIPERACILLIN SODIUM
     Indication: SEPTIC SHOCK
     Dosage: 12 GRAM
     Route: 042
     Dates: start: 20200614
  3. TAZOBACTAM [Suspect]
     Active Substance: TAZOBACTAM
     Indication: SEPTIC SHOCK
     Dosage: 1.5 GRAM
     Route: 042
     Dates: start: 20200614
  4. LOXAPINE. [Suspect]
     Active Substance: LOXAPINE
     Indication: AGITATION
     Dosage: 25 MILLIGRAM
     Route: 048
     Dates: start: 20200619
  5. NEFOPAM HYDROCHLORIDE [Suspect]
     Active Substance: NEFOPAM HYDROCHLORIDE
     Indication: ENDOTRACHEAL INTUBATION
     Dosage: 120 MILLIGRAM
     Route: 042
     Dates: start: 20200614

REACTIONS (1)
  - Encephalopathy [Recovered/Resolved]

NARRATIVE: CASE EVENT DATE: 20200617
